FAERS Safety Report 5795043-X (Version None)
Quarter: 2008Q2

REPORT INFORMATION
  Report Type: 
  Country: None (occurrence: None)
  Receive Date: 20080630
  Receipt Date: 20080311
  Transmission Date: 20081010
  Serious: No
  Sender: FDA-Public Use
  Company Number: US-BRISTOL-MYERS SQUIBB COMPANY-14110860

PATIENT
  Age: 56 Year
  Sex: Female
  Weight: 82 kg

DRUGS (9)
  1. ORENCIA [Suspect]
     Indication: RHEUMATOID ARTHRITIS
     Dates: start: 20080305
  2. COZAAR [Concomitant]
  3. VYTORIN [Concomitant]
  4. DITROPAN [Concomitant]
  5. PRILOSEC [Concomitant]
  6. METHOTREXATE [Concomitant]
  7. PREDNISONE [Concomitant]
  8. VALIUM [Concomitant]
  9. IBUROFEN [Concomitant]

REACTIONS (1)
  - INFLUENZA LIKE ILLNESS [None]
